FAERS Safety Report 5293029-5 (Version None)
Quarter: 2007Q2

REPORT INFORMATION
  Report Type: 
  Country: None (occurrence: None)
  Receive Date: 20070411
  Receipt Date: 20070406
  Transmission Date: 20071010
  Serious: Yes (Other)
  Sender: FDA-Public Use
  Company Number: HQWYE898106APR07

PATIENT
  Sex: Male

DRUGS (1)
  1. CORDARONE [Suspect]
     Indication: ARRHYTHMIA
     Dosage: UNSPECIFIED DOSE AND REGIMEN
     Route: 065
     Dates: start: 20040101

REACTIONS (1)
  - SCLERODERMA [None]
